FAERS Safety Report 9681140 (Version 1)
Quarter: 2013Q4

REPORT INFORMATION
  Report Type: Spontaneous
  Country: GB (occurrence: GB)
  Receive Date: 20131111
  Receipt Date: 20131111
  Transmission Date: 20140711
  Serious: Yes (Other)
  Sender: FDA-Public Use
  Company Number: GB-ELI_LILLY_AND_COMPANY-GB201310009207

PATIENT
  Age: 51 Year
  Sex: Female
  Weight: 48.98 kg

DRUGS (5)
  1. CYMBALTA [Suspect]
     Indication: ANXIETY DISORDER
     Dosage: 60 MG, UNKNOWN
     Route: 048
     Dates: start: 20131002, end: 20131020
  2. CYMBALTA [Suspect]
     Indication: MAJOR DEPRESSION
  3. MIRTAZAPINE [Suspect]
     Indication: ANXIETY DISORDER
     Dosage: 45 MG, UNKNOWN
     Route: 048
     Dates: start: 20130722, end: 20131001
  4. MIRTAZAPINE [Suspect]
     Indication: MAJOR DEPRESSION
  5. SEROXAT [Concomitant]
     Indication: PRODUCT USED FOR UNKNOWN INDICATION
     Dosage: UNK, UNKNOWN
     Route: 065

REACTIONS (1)
  - Alopecia [Not Recovered/Not Resolved]
